FAERS Safety Report 20720538 (Version 1)
Quarter: 2022Q2

REPORT INFORMATION
  Report Type: Spontaneous
  Country: IT (occurrence: CH)
  Receive Date: 20220418
  Receipt Date: 20220418
  Transmission Date: 20220721
  Serious: Yes (Hospitalization)
  Sender: FDA-Public Use
  Company Number: IT-ZAMBON-202200734CHE

PATIENT
  Age: 11 Year
  Sex: Female
  Weight: 34.5 kg

DRUGS (2)
  1. IBUPROFEN [Suspect]
     Active Substance: IBUPROFEN
     Indication: Headache
     Dosage: 140 MILLIGRAM/KILOGRAM, QD (UP TO 100-140 MG/KG,)
  2. ACETAMINOPHEN [Concomitant]
     Active Substance: ACETAMINOPHEN
     Indication: Headache
     Dosage: 40 MILLIGRAM/KILOGRAM, QD (UP TO 40 MG/KG)

REACTIONS (8)
  - Electrolyte imbalance [Recovered/Resolved]
  - Hyperacusis [Recovered/Resolved]
  - Photophobia [Recovered/Resolved]
  - Nausea [Recovered/Resolved]
  - Vomiting [Recovered/Resolved]
  - Renal failure [Recovered/Resolved]
  - Product use issue [Unknown]
  - Overdose [Unknown]
